FAERS Safety Report 12981426 (Version 3)
Quarter: 2017Q1

REPORT INFORMATION
  Report Type: Spontaneous
  Country: GR (occurrence: GR)
  Receive Date: 20161129
  Receipt Date: 20170307
  Transmission Date: 20170428
  Serious: Yes (Other)
  Sender: FDA-Public Use
  Company Number: GR-INCYTE CORPORATION-2016IN007542

PATIENT
  Age: 80 Year
  Sex: Female

DRUGS (11)
  1. JAKAVI [Suspect]
     Active Substance: RUXOLITINIB
     Dosage: 5 MG, BID
     Route: 065
  2. JAKAVI [Suspect]
     Active Substance: RUXOLITINIB
     Indication: POLYCYTHAEMIA
     Dosage: 10 MG, BID
     Route: 065
     Dates: start: 201607
  3. JAKAVI [Suspect]
     Active Substance: RUXOLITINIB
     Dosage: 10 MG, BID
     Route: 065
  4. PLAVIX [Concomitant]
     Active Substance: CLOPIDOGREL BISULFATE
     Indication: PRODUCT USED FOR UNKNOWN INDICATION
     Route: 065
  5. IMDUR [Concomitant]
     Active Substance: ISOSORBIDE MONONITRATE
     Indication: PRODUCT USED FOR UNKNOWN INDICATION
     Route: 065
  6. BONVIVA [Concomitant]
     Active Substance: IBANDRONATE SODIUM
     Indication: PRODUCT USED FOR UNKNOWN INDICATION
     Route: 065
  7. JAKAVI [Suspect]
     Active Substance: RUXOLITINIB
     Dosage: 15 MG, QD (5 MG IN MORNING AND 10 MG IN EVENING)
     Route: 065
  8. TILDIEM [Concomitant]
     Active Substance: DILTIAZEM HYDROCHLORIDE
     Indication: PRODUCT USED FOR UNKNOWN INDICATION
     Route: 065
  9. JAKAVI [Suspect]
     Active Substance: RUXOLITINIB
     Indication: MYELOFIBROSIS
     Dosage: 15 MG, BID
     Route: 065
     Dates: start: 20150619
  10. JAKAVI [Suspect]
     Active Substance: RUXOLITINIB
     Dosage: 5 MG, BID
     Route: 065
     Dates: start: 201610
  11. CALVADINE [Concomitant]
     Indication: PRODUCT USED FOR UNKNOWN INDICATION
     Route: 065

REACTIONS (28)
  - Neutropenia [Recovered/Resolved]
  - Basophil count increased [Unknown]
  - Red blood cell elliptocytes present [Unknown]
  - Haematocrit decreased [Unknown]
  - Splenomegaly [Unknown]
  - Lymphocyte count decreased [Unknown]
  - Hyperkeratosis [Unknown]
  - Mass [Unknown]
  - Mean cell haemoglobin decreased [Unknown]
  - Monocyte count decreased [Unknown]
  - Condition aggravated [Unknown]
  - Second primary malignancy [Unknown]
  - Red blood cell count decreased [Unknown]
  - Skin lesion [Unknown]
  - Red blood cell hypochromic morphology present [Unknown]
  - Haemoglobin increased [Unknown]
  - Skin cancer [Unknown]
  - Mononuclear cell count abnormal [Unknown]
  - Red blood cell anisocytes present [Unknown]
  - Mean cell volume decreased [Unknown]
  - Mean cell haemoglobin concentration decreased [Unknown]
  - Mean platelet volume increased [Unknown]
  - Asthenia [Unknown]
  - Thrombocytopenia [Recovered/Resolved]
  - Blood smear test abnormal [Unknown]
  - Red cell distribution width increased [Unknown]
  - Haemoglobin decreased [Unknown]
  - Haemoglobin distribution width increased [Unknown]

NARRATIVE: CASE EVENT DATE: 201605
